FAERS Safety Report 24958597 (Version 1)
Quarter: 2025Q1

REPORT INFORMATION
  Report Type: Other
  Country: GB (occurrence: GB)
  Receive Date: 20250212
  Receipt Date: 20250212
  Transmission Date: 20250408
  Serious: Yes (Hospitalization)
  Sender: ESJAY PHARMA
  Company Number: GB-ESJAY PHARMA-000067

PATIENT
  Age: 74 Year
  Sex: Male

DRUGS (4)
  1. CLARITHROMYCIN [Suspect]
     Active Substance: CLARITHROMYCIN
     Indication: Atypical mycobacterial infection
  2. ISONIAZID [Concomitant]
     Active Substance: ISONIAZID
     Indication: Atypical mycobacterial infection
  3. RIFAMPIN [Concomitant]
     Active Substance: RIFAMPIN
     Indication: Atypical mycobacterial infection
  4. PYRIDOXINE [Concomitant]
     Active Substance: PYRIDOXINE
     Indication: Atypical mycobacterial infection

REACTIONS (2)
  - Drug intolerance [Unknown]
  - Treatment noncompliance [Unknown]
